FAERS Safety Report 9669841 (Version 3)
Quarter: 2014Q2

REPORT INFORMATION
  Report Type: Spontaneous
  Country: US (occurrence: US)
  Receive Date: 20131105
  Receipt Date: 20140428
  Transmission Date: 20141212
  Serious: No
  Sender: FDA-Public Use
  Company Number: US-TEVA-441638USA

PATIENT
  Age: 82 Year
  Sex: Male
  Weight: 74.91 kg

DRUGS (3)
  1. AZILECT [Suspect]
     Indication: PARKINSON^S DISEASE
  2. AMANTADINE [Concomitant]
     Indication: TREMOR
  3. AMANTADINE [Concomitant]
     Indication: FATIGUE

REACTIONS (3)
  - Constipation [Recovering/Resolving]
  - Asthenia [Not Recovered/Not Resolved]
  - Somnolence [Unknown]
